FAERS Safety Report 19184427 (Version 1)
Quarter: 2021Q2

REPORT INFORMATION
  Report Type: Spontaneous
  Country: US (occurrence: US)
  Receive Date: 20210427
  Receipt Date: 20210427
  Transmission Date: 20210717
  Serious: Yes (Other)
  Sender: FDA-Public Use
  Company Number: None

PATIENT
  Sex: Female
  Weight: 94.5 kg

DRUGS (10)
  1. PREDNISONE. [Concomitant]
     Active Substance: PREDNISONE
  2. NALTREXONE [Concomitant]
     Active Substance: NALTREXONE
  3. LOSARTAN. [Concomitant]
     Active Substance: LOSARTAN
  4. FLUTICASONE PROPIONATE AND SALMETEROL [Concomitant]
     Active Substance: FLUTICASONE PROPIONATE\SALMETEROL XINAFOATE
  5. ALBUTEROL. [Concomitant]
     Active Substance: ALBUTEROL
  6. ALVESCO [Concomitant]
     Active Substance: CICLESONIDE
  7. LEVOTHYROXINE. [Concomitant]
     Active Substance: LEVOTHYROXINE
  8. XELJANZ [Suspect]
     Active Substance: TOFACITINIB CITRATE
     Indication: RHEUMATOID ARTHRITIS
  9. ACYCLOVIR. [Concomitant]
     Active Substance: ACYCLOVIR
  10. DAILY VITAMINS [Concomitant]
     Active Substance: VITAMINS

REACTIONS (4)
  - Dizziness [None]
  - Abdominal discomfort [None]
  - Hyperhidrosis [None]
  - Vomiting [None]
